FAERS Safety Report 8827472 (Version 1)
Quarter: 2012Q4

REPORT INFORMATION
  Report Type: Report from Study
  Country: CA (occurrence: CA)
  Receive Date: 20121008
  Receipt Date: 20121008
  Transmission Date: 20130627
  Serious: Yes (Hospitalization)
  Sender: FDA-Public Use
  Company Number: CA-JNJFOC-20120912082

PATIENT
  Sex: Female
  Weight: 57.61 kg

DRUGS (1)
  1. REMICADE [Suspect]
     Indication: CROHN^S DISEASE
     Route: 042

REACTIONS (3)
  - Exposure during pregnancy [Recovered/Resolved]
  - Frequent bowel movements [Unknown]
  - Abdominal discomfort [Unknown]
